FAERS Safety Report 13164012 (Version 1)
Quarter: 2017Q1

REPORT INFORMATION
  Report Type: Spontaneous
  Country: FR (occurrence: FR)
  Receive Date: 20170130
  Receipt Date: 20170130
  Transmission Date: 20170428
  Serious: Yes (Hospitalization)
  Sender: FDA-Public Use
  Company Number: FR-ELI_LILLY_AND_COMPANY-FR201701005765

PATIENT
  Age: 69 Year
  Sex: Female

DRUGS (5)
  1. OXALIPLATINE HOSPIRA [Suspect]
     Active Substance: OXALIPLATIN
     Indication: CHOLANGIOCARCINOMA
     Dosage: UNK, CYCLICAL
     Route: 042
     Dates: start: 20160712, end: 20161018
  2. GEMZAR [Suspect]
     Active Substance: GEMCITABINE HYDROCHLORIDE
     Indication: CHOLANGIOCARCINOMA
     Dosage: UNK, CYCLICAL
     Route: 042
     Dates: start: 20160712, end: 20161018
  3. ADENURIC [Suspect]
     Active Substance: FEBUXOSTAT
     Indication: HYPERURICAEMIA
     Dosage: 80 MG, QD
     Route: 048
     Dates: start: 20160715
  4. ARANESP [Suspect]
     Active Substance: DARBEPOETIN ALFA
     Indication: ANAEMIA
     Dosage: UNK, UNKNOWN
     Route: 058
     Dates: start: 20160906, end: 20161004
  5. KARDEGIC [Suspect]
     Active Substance: ASPIRIN LYSINE
     Indication: CAROTID ARTERIOSCLEROSIS
     Dosage: 75 MG, QD
     Route: 048

REACTIONS (6)
  - Capillaritis [Unknown]
  - Carotid arteriosclerosis [Unknown]
  - Peripheral venous disease [Unknown]
  - Limb injury [Unknown]
  - Scleroderma-like reaction [Not Recovered/Not Resolved]
  - Oedema [Unknown]

NARRATIVE: CASE EVENT DATE: 20161129
